FAERS Safety Report 4902362-5 (Version None)
Quarter: 2006Q1

REPORT INFORMATION
  Report Type: 
  Country: None (occurrence: None)
  Receive Date: 20060202
  Receipt Date: 20060125
  Transmission Date: 20060701
  Serious: Yes (Other)
  Sender: FDA-Public Use
  Company Number: 221483

PATIENT
  Age: 45 Year
  Sex: Female

DRUGS (3)
  1. MABTHERA (RITUXIMAB) CONC FOR SOLUTION FOR INFUSION [Suspect]
     Indication: B-CELL LYMPHOMA
     Dosage: 250 MG/M2, INTRAVENOUS
     Route: 042
     Dates: start: 20050405
  2. ZEVALIN [Suspect]
     Indication: B-CELL LYMPHOMA
     Dosage: 3.5 MCI, SINGLE, INTRAVENOUS
     Route: 042
     Dates: start: 20050405
  3. IN-111 ZEVALIN(IBRITUMOMAB TIUXETAN, INDIUM-111) [Suspect]
     Indication: B-CELL LYMPHOMA
     Dosage: 0.3 MCI/KG, INTRAVENOUS
     Route: 042

REACTIONS (1)
  - NEUTROPHIL COUNT DECREASED [None]
